FAERS Safety Report 4377077-5 (Version None)
Quarter: 2004Q2

REPORT INFORMATION
  Report Type: 
  Country: None (occurrence: None)
  Receive Date: 20040614
  Receipt Date: 20000918
  Transmission Date: 20050107
  Serious: Yes (Hospitalization, Other)
  Sender: FDA-Public Use
  Company Number: US-MERCK-00091403

PATIENT
  Age: 58 Year
  Sex: Female
  Weight: 64 kg

DRUGS (13)
  1. TYLENOL [Concomitant]
     Route: 065
  2. FIORICET TABLETS [Concomitant]
     Indication: HEADACHE
     Route: 065
     Dates: start: 19930101
  3. FIORICET TABLETS [Concomitant]
     Indication: NECK PAIN
     Route: 065
     Dates: start: 19930101
  4. ASPIRIN [Concomitant]
     Indication: PROPHYLAXIS
     Route: 065
     Dates: start: 19990201, end: 19991001
  5. ZITHROMAX [Concomitant]
     Indication: SINUSITIS
     Route: 065
  6. CIMICIFUGA [Concomitant]
     Route: 065
  7. PREMPRO [Concomitant]
     Route: 065
     Dates: start: 19990201, end: 19990901
  8. ADVIL [Concomitant]
     Route: 065
  9. MOTRIN [Concomitant]
     Route: 065
  10. NAPROXEN [Concomitant]
     Route: 065
     Dates: start: 19990721, end: 19991012
  11. VIOXX [Suspect]
     Indication: ARTHRALGIA
     Route: 048
     Dates: start: 19990722, end: 20000816
  12. VIOXX [Suspect]
     Route: 048
     Dates: start: 20000819, end: 20000824
  13. AMBIEN [Concomitant]
     Route: 065
     Dates: start: 19990201

REACTIONS (39)
  - ABDOMINAL DISTENSION [None]
  - ABDOMINAL PAIN [None]
  - ABNORMAL FAECES [None]
  - ADVERSE EVENT [None]
  - ALOPECIA [None]
  - APHTHOUS STOMATITIS [None]
  - BONE CYST [None]
  - BRONCHITIS ACUTE [None]
  - CARDIOLIPIN ANTIBODY POSITIVE [None]
  - CEREBROVASCULAR ACCIDENT [None]
  - CONSTIPATION [None]
  - CONTUSION [None]
  - DEPRESSION [None]
  - DIVERTICULITIS [None]
  - EMOTIONAL DISTRESS [None]
  - FEELING ABNORMAL [None]
  - FEELING COLD [None]
  - FIBROCYSTIC BREAST DISEASE [None]
  - GINGIVAL INFECTION [None]
  - HEAD INJURY [None]
  - HOT FLUSH [None]
  - HYPERCOAGULATION [None]
  - HYPERKERATOSIS [None]
  - HYPERSENSITIVITY [None]
  - INSOMNIA [None]
  - MIGRAINE [None]
  - NAIL RIDGING [None]
  - NAUSEA [None]
  - NEUROPATHY PERIPHERAL [None]
  - NON-CARDIAC CHEST PAIN [None]
  - OEDEMA [None]
  - PAIN [None]
  - RASH [None]
  - RHINITIS ALLERGIC [None]
  - SYSTOLIC HYPERTENSION [None]
  - TOOTH ABSCESS [None]
  - TRANSIENT ISCHAEMIC ATTACK [None]
  - URTICARIA [None]
  - WEIGHT INCREASED [None]
